FAERS Safety Report 4424905-0 (Version None)
Quarter: 2004Q3

REPORT INFORMATION
  Report Type: 
  Country: None (occurrence: None)
  Receive Date: 20040809
  Receipt Date: 20040803
  Transmission Date: 20050211
  Serious: Yes (Life-Threatening)
  Sender: FDA-Public Use
  Company Number: GBWYE948804AUG04

PATIENT
  Age: 77 Year
  Sex: Female

DRUGS (6)
  1. ADVIL [Suspect]
     Indication: NECK PAIN
     Dosage: 400 MG THREE TIMES DAILY WHEN REQUIRED; ORAL
     Route: 048
     Dates: start: 19900101
  2. SALBUTAMOL (SALBUTAMOL) [Concomitant]
  3. LOSARTAN (LOSARTAN) [Concomitant]
  4. BENDROFLUMETHIAZIDE (BENDROFLUMETHIAZIDE) [Concomitant]
  5. BECLOMETHASONE DIPROPIONATE (BECLOMETASONE DIPROPIONATE) [Concomitant]
  6. DOXAZOSIN (DOXAZOSIN) [Concomitant]

REACTIONS (1)
  - PEPTIC ULCER PERFORATION [None]
